FAERS Safety Report 8588047-5 (Version None)
Quarter: 2012Q3

REPORT INFORMATION
  Report Type: 
  Country: None (occurrence: None)
  Receive Date: 20120731
  Receipt Date: 20120717
  Transmission Date: 20120928
  Serious: Yes (Hospitalization)
  Sender: FDA-Public Use
  Company Number: 1360209

PATIENT
  Age: 56 Year
  Sex: Male

DRUGS (1)
  1. MEROPENEM [Suspect]
     Indication: INFECTION

REACTIONS (4)
  - CROSS SENSITIVITY REACTION [None]
  - CONDITION AGGRAVATED [None]
  - RENAL IMPAIRMENT [None]
  - RASH [None]
